FAERS Safety Report 9943464 (Version 2)
Quarter: 2014Q1

REPORT INFORMATION
  Report Type: Report from Study
  Country: US (occurrence: US)
  Receive Date: 20140303
  Receipt Date: 20140303
  Transmission Date: 20141002
  Serious: Yes (Hospitalization)
  Sender: FDA-Public Use
  Company Number: US-ABBVIE-12P-163-0944548-00

PATIENT
  Age: 60 Year
  Sex: Female
  Weight: 93.07 kg

DRUGS (11)
  1. HUMIRA 40 MG/0.8 ML PEN [Suspect]
     Indication: CROHN^S DISEASE
     Route: 058
     Dates: start: 201201, end: 201203
  2. HUMIRA 40 MG/0.8 ML PEN [Suspect]
     Route: 058
     Dates: start: 201205
  3. B-12 [Concomitant]
     Indication: VITAMIN B12 DEFICIENCY
  4. LANSOPRAZOL [Concomitant]
     Indication: GASTROOESOPHAGEAL REFLUX DISEASE
  5. LISINOPRIL/HCTZ [Concomitant]
     Indication: HYPERTENSION
  6. PRADAXA [Concomitant]
     Indication: ATRIAL FIBRILLATION
     Dates: start: 2011
  7. RANITIDINE [Concomitant]
     Indication: GASTROOESOPHAGEAL REFLUX DISEASE
  8. VERAPAMIL [Concomitant]
     Indication: ATRIAL FIBRILLATION
     Dates: start: 2009
  9. SULFASALAZINE [Concomitant]
     Indication: ARTHRITIS
  10. SULFASALAZINE [Concomitant]
     Indication: CROHN^S DISEASE
  11. PROPRANOLOL [Concomitant]
     Indication: TREMOR
     Dates: start: 201101

REACTIONS (2)
  - Knee arthroplasty [Recovered/Resolved]
  - Arthralgia [Recovered/Resolved]
